FAERS Safety Report 6356838-7 (Version None)
Quarter: 2009Q3

REPORT INFORMATION
  Report Type: 
  Country: None (occurrence: None)
  Receive Date: 20090915
  Receipt Date: 20090909
  Transmission Date: 20100115
  Serious: Yes (Death, Hospitalization, Other)
  Sender: FDA-Public Use
  Company Number: US-ROXANE LABORATORIES, INC.-2009-RO-00928RO

PATIENT
  Age: 49 Year
  Sex: Female

DRUGS (9)
  1. PREDNISONE TAB [Suspect]
     Indication: AUTOIMMUNE HEPATITIS
  2. PREDNISONE TAB [Suspect]
  3. PREDNISONE TAB [Suspect]
     Dosage: 60 MG
  4. PREDNISONE TAB [Suspect]
     Dosage: 5 MG
  5. AZATHIOPRINE [Suspect]
     Indication: IMMUNOSUPPRESSANT DRUG THERAPY
  6. AZATHIOPRINE [Suspect]
     Dosage: 50 MG
  7. AZATHIOPRINE [Suspect]
     Dosage: 100 MG
  8. AZATHIOPRINE [Suspect]
     Dosage: 150 MG
  9. TRIMETHOPRIM + SULFAMETHOXAZOLE [Suspect]
     Indication: ANTIFUNGAL PROPHYLAXIS

REACTIONS (15)
  - ALANINE AMINOTRANSFERASE INCREASED [None]
  - AUTOIMMUNE HEPATITIS [None]
  - BLOOD HIV RNA INCREASED [None]
  - CD4 LYMPHOCYTES DECREASED [None]
  - CLOSTRIDIUM DIFFICILE COLITIS [None]
  - CYTOMEGALOVIRUS VIRAEMIA [None]
  - DEATH [None]
  - FATIGUE [None]
  - MUSCULAR WEAKNESS [None]
  - PNEUMOCYSTIS JIROVECI INFECTION [None]
  - PNEUMOCYSTIS JIROVECI PNEUMONIA [None]
  - PYELONEPHRITIS [None]
  - RESPIRATORY DISTRESS [None]
  - SEPSIS [None]
  - VISUAL IMPAIRMENT [None]
